FAERS Safety Report 21420882 (Version 2)
Quarter: 2022Q4

REPORT INFORMATION
  Report Type: Report from Study
  Country: US (occurrence: US)
  Receive Date: 20221007
  Receipt Date: 20221129
  Transmission Date: 20230112
  Serious: Yes (Other)
  Sender: FDA-Public Use
  Company Number: US-ABBVIE-4142097

PATIENT
  Sex: Male

DRUGS (1)
  1. VENCLEXTA [Suspect]
     Active Substance: VENETOCLAX
     Indication: Chronic lymphocytic leukaemia
     Route: 048
     Dates: start: 202103

REACTIONS (5)
  - Large intestine polyp [Unknown]
  - Dyspepsia [Unknown]
  - Constipation [Unknown]
  - Flatulence [Unknown]
  - Abdominal distension [Unknown]
